FAERS Safety Report 19975068 (Version 1)
Quarter: 2021Q4

REPORT INFORMATION
  Report Type: Spontaneous
  Country: US (occurrence: US)
  Receive Date: 20211020
  Receipt Date: 20211020
  Transmission Date: 20220304
  Serious: No
  Sender: FDA-Public Use
  Company Number: US-ALLERGAN-2102274US

PATIENT
  Sex: Male

DRUGS (4)
  1. LINZESS [Suspect]
     Active Substance: LINACLOTIDE
     Indication: Constipation
     Dosage: AT FIRST 145MCG ONCE DAILY, THEN 1/2 OF A  145MCG TABLET ONCE DAILY
     Route: 048
     Dates: start: 202012
  2. UNSPECIFIED INGREDIENT [Concomitant]
     Active Substance: UNSPECIFIED INGREDIENT
     Indication: Hypertension
  3. UNSPECIFIED INGREDIENT [Concomitant]
     Active Substance: UNSPECIFIED INGREDIENT
     Indication: Blood cholesterol increased
  4. prostate medication [Concomitant]
     Indication: Prostatic disorder

REACTIONS (5)
  - Insomnia [Recovered/Resolved]
  - Intentional product use issue [Unknown]
  - Therapeutic product effect variable [Recovering/Resolving]
  - Abdominal pain upper [Unknown]
  - Constipation [Recovering/Resolving]
